FAERS Safety Report 7899983-7 (Version None)
Quarter: 2011Q4

REPORT INFORMATION
  Report Type: 
  Country: None (occurrence: None)
  Receive Date: 20111107
  Receipt Date: 20111025
  Transmission Date: 20120403
  Serious: No
  Sender: FDA-Public Use
  Company Number: US-AMGEN-USASP2011043178

PATIENT
  Sex: Female

DRUGS (7)
  1. CALCIUM +VIT D [Concomitant]
  2. ENBREL [Suspect]
     Indication: ANKYLOSING SPONDYLITIS
  3. NAPROXEN [Concomitant]
  4. ENBREL [Suspect]
     Indication: RHEUMATOID ARTHRITIS
     Dosage: 50 MG, QWK
     Dates: start: 20081001, end: 20110701
  5. PREDNISONE [Concomitant]
  6. PRENATAL VITAMINS                  /01549301/ [Concomitant]
  7. FOLIC ACID [Concomitant]

REACTIONS (1)
  - EYE INFECTION [None]
